FAERS Safety Report 4935340-0 (Version None)
Quarter: 2006Q1

REPORT INFORMATION
  Report Type: 
  Country: None (occurrence: None)
  Receive Date: 20060307
  Receipt Date: 20050711
  Transmission Date: 20060701
  Serious: No
  Sender: FDA-Public Use
  Company Number: US-GLAXOSMITHKLINE-A0565781A

PATIENT
  Age: 86 Year
  Sex: Female

DRUGS (9)
  1. REQUIP [Suspect]
     Indication: RESTLESS LEGS SYNDROME
     Dosage: 1MG AT NIGHT
     Route: 048
     Dates: start: 20050630
  2. COUMADIN [Concomitant]
  3. ATENOLOL [Concomitant]
  4. STARLIX [Concomitant]
  5. LANOXIN [Concomitant]
  6. CARDIZEM [Concomitant]
  7. TENORMIN [Concomitant]
  8. SLEEPING PILL [Concomitant]
  9. MULTI-VITAMIN [Concomitant]

REACTIONS (3)
  - ALOPECIA [None]
  - DRUG INEFFECTIVE [None]
  - RESTLESS LEGS SYNDROME [None]
